FAERS Safety Report 9782148 (Version 4)
Quarter: 2014Q1

REPORT INFORMATION
  Report Type: Spontaneous
  Country: FR (occurrence: FR)
  Receive Date: 20131226
  Receipt Date: 20140213
  Transmission Date: 20141002
  Serious: Yes (Other)
  Sender: FDA-Public Use
  Company Number: FR-AMGEN-FRASP2013090464

PATIENT
  Age: 63 Year
  Sex: Male
  Weight: 65 kg

DRUGS (5)
  1. ENBREL [Suspect]
     Indication: PSORIASIS
     Dosage: 50 MG, WEEKLY
     Route: 058
     Dates: start: 20130110, end: 201311
  2. ENBREL [Suspect]
     Dosage: 50 MG, WEEKLY
     Route: 058
  3. INEXIUM                            /01479302/ [Concomitant]
     Indication: GASTRITIS
     Dosage: 20 MG, 1X/DAY
     Route: 048
     Dates: start: 2008
  4. OLMETEC [Concomitant]
     Indication: HYPERTENSION
     Dosage: 20 MG, 1X/DAY
     Route: 048
     Dates: start: 2012
  5. DOLIPRANE [Concomitant]
     Indication: HEADACHE
     Dosage: 1 G, 1X/DAY (INTERMITTENTLY)
     Route: 048

REACTIONS (3)
  - Hepatocellular injury [Recovering/Resolving]
  - Suicidal ideation [Unknown]
  - Psoriasis [Unknown]
